FAERS Safety Report 25829829 (Version 1)
Quarter: 2025Q3

REPORT INFORMATION
  Report Type: Spontaneous
  Country: EU (occurrence: EU)
  Receive Date: 20250922
  Receipt Date: 20250922
  Transmission Date: 20251020
  Serious: Yes (Other)
  Sender: HIKMA
  Company Number: None

PATIENT
  Age: 64 Year
  Sex: Female

DRUGS (1)
  1. LEVOFLOXACIN SODIUM [Suspect]
     Active Substance: LEVOFLOXACIN SODIUM
     Indication: Product used for unknown indication
     Route: 042
     Dates: start: 20250827, end: 20250827

REACTIONS (2)
  - Skin reaction [Recovered/Resolved]
  - Adverse drug reaction [Recovered/Resolved]

NARRATIVE: CASE EVENT DATE: 20250827
